FAERS Safety Report 25805959 (Version 1)
Quarter: 2025Q3

REPORT INFORMATION
  Report Type: Report from Study
  Country: US (occurrence: US)
  Receive Date: 20250916
  Receipt Date: 20250916
  Transmission Date: 20251020
  Serious: Yes (Hospitalization)
  Sender: TAKEDA
  Company Number: US-TAKEDA-2021TUS033506

PATIENT
  Age: 23 Year
  Sex: Female
  Weight: 57 kg

DRUGS (44)
  1. HUMAN IMMUNOGLOBULIN G\HYALURONIDASE RECOMBINANT HUMAN [Suspect]
     Active Substance: HUMAN IMMUNOGLOBULIN G\HYALURONIDASE (HUMAN RECOMBINANT)
     Indication: Immunodeficiency common variable
     Dosage: 25 MILLIGRAM, Q4WEEKS
  2. HUMAN IMMUNOGLOBULIN G\HYALURONIDASE RECOMBINANT HUMAN [Suspect]
     Active Substance: HUMAN IMMUNOGLOBULIN G\HYALURONIDASE (HUMAN RECOMBINANT)
     Dosage: 25 GRAM, Q4WEEKS
  3. HUMAN IMMUNOGLOBULIN G\HYALURONIDASE RECOMBINANT HUMAN [Suspect]
     Active Substance: HUMAN IMMUNOGLOBULIN G\HYALURONIDASE (HUMAN RECOMBINANT)
  4. HUMAN IMMUNOGLOBULIN G\HYALURONIDASE RECOMBINANT HUMAN [Suspect]
     Active Substance: HUMAN IMMUNOGLOBULIN G\HYALURONIDASE (HUMAN RECOMBINANT)
     Dosage: 25 GRAM, Q4WEEKS
  5. ACETAMINOPHEN [Concomitant]
     Active Substance: ACETAMINOPHEN
  6. SODIUM CHLORIDE [Concomitant]
     Active Substance: SODIUM CHLORIDE
  7. BUSPIRONE HCL [Concomitant]
     Active Substance: BUSPIRONE HYDROCHLORIDE
  8. MARINOL [Concomitant]
     Active Substance: DRONABINOL
  9. ALLEGRA ALLERGY [Concomitant]
     Active Substance: FEXOFENADINE HYDROCHLORIDE
  10. PEPCID [Concomitant]
     Active Substance: FAMOTIDINE
  11. DEPLIN [Concomitant]
     Active Substance: LEVOMEFOLATE CALCIUM
  12. VITAMINS [Concomitant]
     Active Substance: VITAMINS
  13. MESTINON [Concomitant]
     Active Substance: PYRIDOSTIGMINE BROMIDE
  14. PRISTIQ EXTENDED-RELEASE [Concomitant]
     Active Substance: DESVENLAFAXINE SUCCINATE
  15. NURTEC ODT [Concomitant]
     Active Substance: RIMEGEPANT SULFATE
  16. FLUDROCORTISONE ACETATE [Concomitant]
     Active Substance: FLUDROCORTISONE ACETATE
  17. MAXALT [Concomitant]
     Active Substance: RIZATRIPTAN BENZOATE
  18. Lmx [Concomitant]
  19. DIPHENHYDRAMINE HYDROCHLORIDE [Concomitant]
     Active Substance: DIPHENHYDRAMINE HYDROCHLORIDE
  20. PROPRANOLOL HYDROCHLORIDE [Concomitant]
     Active Substance: PROPRANOLOL HYDROCHLORIDE
  21. CYPROHEPTADINE HYDROCHLORIDE [Concomitant]
     Active Substance: CYPROHEPTADINE HYDROCHLORIDE
  22. BLISOVI 24 FE [Concomitant]
     Active Substance: ETHINYL ESTRADIOL\NORETHINDRONE ACETATE
  23. DESMOPRESSIN ACETATE [Concomitant]
     Active Substance: DESMOPRESSIN ACETATE
  24. ALPRAZOLAM [Concomitant]
     Active Substance: ALPRAZOLAM
  25. EMGALITY [Concomitant]
     Active Substance: GALCANEZUMAB-GNLM
  26. WELLBUTRIN SR [Concomitant]
     Active Substance: BUPROPION HYDROCHLORIDE
  27. LIDOCAINE [Concomitant]
     Active Substance: LIDOCAINE
  28. EPINEPHRINE [Concomitant]
     Active Substance: EPINEPHRINE
  29. PROPRANOLOL [Concomitant]
     Active Substance: PROPRANOLOL HYDROCHLORIDE
  30. BUSPIRONE [Concomitant]
     Active Substance: BUSPIRONE HYDROCHLORIDE
  31. DESMOPRESSIN [Concomitant]
     Active Substance: DESMOPRESSIN
  32. FLUDROCORTISONE [Concomitant]
     Active Substance: FLUDROCORTISONE
  33. AMITIZA [Concomitant]
     Active Substance: LUBIPROSTONE
  34. CYPROHEPTADINE [Concomitant]
     Active Substance: CYPROHEPTADINE
  35. Maxalert [Concomitant]
  36. Marinosil [Concomitant]
  37. DESVENLAFAXINE SUCCINATE [Concomitant]
     Active Substance: DESVENLAFAXINE SUCCINATE
  38. TOPAMAX [Concomitant]
     Active Substance: TOPIRAMATE
  39. QULIPTA [Concomitant]
     Active Substance: ATOGEPANT
  40. MEMANTINE [Concomitant]
     Active Substance: MEMANTINE
  41. VIBERZI [Concomitant]
     Active Substance: ELUXADOLINE
  42. NADOLOL [Concomitant]
     Active Substance: NADOLOL
  43. ZYPREXA [Concomitant]
     Active Substance: OLANZAPINE
  44. CLONIDINE [Concomitant]
     Active Substance: CLONIDINE

REACTIONS (12)
  - Migraine [Unknown]
  - Nasopharyngitis [Unknown]
  - Hordeolum [Unknown]
  - Postural orthostatic tachycardia syndrome [Unknown]
  - Infusion site reaction [Unknown]
  - Infusion site discharge [Unknown]
  - Influenza [Unknown]
  - COVID-19 [Unknown]
  - Sinusitis [Unknown]
  - Infusion site erythema [Unknown]
  - Infusion site swelling [Unknown]
  - Infusion site pruritus [Unknown]

NARRATIVE: CASE EVENT DATE: 20240113
